FAERS Safety Report 5341447-9 (Version None)
Quarter: 2007Q2

REPORT INFORMATION
  Report Type: 
  Country: None (occurrence: None)
  Receive Date: 20070530
  Receipt Date: 20070530
  Transmission Date: 20071010
  Serious: Yes (Other)
  Sender: FDA-Public Use
  Company Number: None

PATIENT
  Age: 68 Year
  Sex: Female
  Weight: 80.7403 kg

DRUGS (9)
  1. SERTRALINE [Suspect]
     Indication: DEPRESSION
     Dosage: 100MG AM
     Dates: start: 20070323, end: 20070423
  2. ZANTAC [Concomitant]
  3. COUMADIN [Concomitant]
  4. ARIMIDEX [Concomitant]
  5. HYDROCHLOROTHIAZIDE [Concomitant]
  6. NIFEDIPINE [Concomitant]
  7. PRAVACHOL [Concomitant]
  8. FLONASE [Concomitant]
  9. ACETAMINOPHEN [Concomitant]

REACTIONS (6)
  - DRY EYE [None]
  - EYE PRURITUS [None]
  - EYE SWELLING [None]
  - PHARMACEUTICAL PRODUCT COMPLAINT [None]
  - PRURITUS GENERALISED [None]
  - URTICARIA GENERALISED [None]
